FAERS Safety Report 8480843-8 (Version None)
Quarter: 2012Q2

REPORT INFORMATION
  Report Type: 
  Country: None (occurrence: None)
  Receive Date: 20120626
  Receipt Date: 20120626
  Transmission Date: 20120825
  Serious: Yes (Other)
  Sender: FDA-Public Use
  Company Number: None

PATIENT
  Age: 26 Year
  Sex: Male
  Weight: 53.3 kg

DRUGS (2)
  1. DIAZEPAM [Suspect]
     Indication: MUSCLE SPASMS
     Dosage: 2MG Q4H IV BOLUS
     Route: 040
  2. DIAZEPAM [Suspect]
     Indication: PAIN
     Dosage: 2MG Q4H IV BOLUS
     Route: 040

REACTIONS (2)
  - UNRESPONSIVE TO STIMULI [None]
  - HYPOPNOEA [None]
